FAERS Safety Report 20892343 (Version 1)
Quarter: 2022Q2

REPORT INFORMATION
  Report Type: Spontaneous
  Country: TW (occurrence: TW)
  Receive Date: 20220530
  Receipt Date: 20220530
  Transmission Date: 20220720
  Serious: Yes (Other)
  Sender: FDA-Public Use
  Company Number: TW-ALVOGEN-2022-ALVOGEN-120437

PATIENT
  Age: 42 Year
  Sex: Female

DRUGS (3)
  1. LIDOCAINE [Suspect]
     Active Substance: LIDOCAINE
     Indication: Nasal decongestion therapy
     Dosage: SPRAY
  2. EPINEPHRINE [Concomitant]
     Active Substance: EPINEPHRINE
     Indication: Nasal decongestion therapy
  3. DEXAMETHASONE [Concomitant]
     Active Substance: DEXAMETHASONE
     Indication: Product used for unknown indication
     Dosage: INJECTED INTO THE AREA OF THE RIGHT VOCAL CYST

REACTIONS (2)
  - Quadriparesis [Recovered/Resolved]
  - Spinal cord disorder [Recovered/Resolved]
